FAERS Safety Report 5008756-4 (Version None)
Quarter: 2006Q2

REPORT INFORMATION
  Report Type: 
  Country: None (occurrence: None)
  Receive Date: 20060517
  Receipt Date: 20060516
  Transmission Date: 20061013
  Serious: Yes (Hospitalization)
  Sender: FDA-Public Use
  Company Number: 220388

PATIENT
  Sex: Female

DRUGS (2)
  1. AVASTIN [Suspect]
     Dosage: 375 MG, Q2W,
     Dates: start: 20050217, end: 20050512
  2. INTRON A [Suspect]
     Dosage: SUBCUTANEOUS
     Route: 058
     Dates: start: 20050415

REACTIONS (1)
  - ARTHRITIS [None]
